FAERS Safety Report 15946624 (Version 1)
Quarter: 2019Q1

REPORT INFORMATION
  Report Type: Other
  Country: PT (occurrence: PT)
  Receive Date: 20190212
  Receipt Date: 20190212
  Transmission Date: 20190417
  Serious: Yes (Life-Threatening)
  Sender: FDA-Public Use
  Company Number: PT-HIKMA PHARMACEUTICALS USA INC.-PT-H14001-19-00875

PATIENT
  Age: 41 Year
  Sex: Male

DRUGS (5)
  1. ROCURONIUM [Suspect]
     Active Substance: ROCURONIUM BROMIDE
     Indication: URETHRAL REPAIR
     Dosage: ()
  2. FENTANILO [Suspect]
     Active Substance: FENTANYL
     Indication: URETHRAL REPAIR
     Dosage: ()
  3. DEXAMETHASONE. [Suspect]
     Active Substance: DEXAMETHASONE
     Indication: URETHRAL REPAIR
     Dosage: ()
  4. CEFTRIAXONE. [Suspect]
     Active Substance: CEFTRIAXONE
     Indication: URETHRAL REPAIR
     Dosage: ()
  5. PROPOFOL. [Suspect]
     Active Substance: PROPOFOL
     Indication: URETHRAL REPAIR
     Dosage: ()

REACTIONS (4)
  - Hypotension [Recovered/Resolved]
  - Oxygen saturation decreased [Recovered/Resolved]
  - Tachycardia [Recovered/Resolved]
  - Anaphylactic shock [Recovered/Resolved]

NARRATIVE: CASE EVENT DATE: 20190121
